FAERS Safety Report 16919035 (Version 1)
Quarter: 2019Q4

REPORT INFORMATION
  Report Type: Spontaneous
  Country: US (occurrence: US)
  Receive Date: 20191015
  Receipt Date: 20191015
  Transmission Date: 20200122
  Serious: No
  Sender: FDA-Public Use
  Company Number: US-PFIZER INC-2019441031

PATIENT
  Age: 62 Year
  Sex: Female

DRUGS (2)
  1. METHOTREXATE SODIUM. [Suspect]
     Active Substance: METHOTREXATE SODIUM
     Dosage: 0.8 ML, UNK, [250MG/10ML INJECTION SOLUTION INCREASE BY 0.1 CC WEEKLY UP TO 0.8 CC WEEKLY]
  2. METHOTREXATE SODIUM. [Suspect]
     Active Substance: METHOTREXATE SODIUM
     Indication: RHEUMATOID ARTHRITIS
     Dosage: UNK (250MG/10ML INJECTION, INCREASE BY 0.1 CC WEEKLY UP TO 0.8 CC WEEKLY START AT 0.4CC)

REACTIONS (3)
  - Diarrhoea [Unknown]
  - Therapeutic product effect incomplete [Unknown]
  - Headache [Unknown]
